FAERS Safety Report 6838534-2 (Version None)
Quarter: 2010Q3

REPORT INFORMATION
  Report Type: 
  Country: None (occurrence: None)
  Receive Date: 20100713
  Receipt Date: 20070616
  Transmission Date: 20110219
  Serious: No
  Sender: FDA-Public Use
  Company Number: US-PFIZER INC-2007050061

PATIENT
  Sex: Male
  Weight: 156.36 kg

DRUGS (10)
  1. CHANTIX [Suspect]
     Indication: SMOKING CESSATION THERAPY
     Dates: start: 20070608
  2. PROZAC [Concomitant]
  3. ATENOLOL [Concomitant]
  4. XANAX [Concomitant]
  5. LIPITOR [Concomitant]
  6. ORAP [Concomitant]
  7. GEMFIBROZIL [Concomitant]
  8. OMEPRAZOLE [Concomitant]
  9. ASPIRINE [Concomitant]
  10. VITAMIN C [Concomitant]

REACTIONS (3)
  - ABNORMAL DREAMS [None]
  - ANXIETY [None]
  - STRESS [None]
